FAERS Safety Report 7755227-8 (Version None)
Quarter: 2011Q3

REPORT INFORMATION
  Report Type: 
  Country: None (occurrence: None)
  Receive Date: 20110913
  Receipt Date: 20110830
  Transmission Date: 20111222
  Serious: Yes (Other)
  Sender: FDA-Public Use
  Company Number: DSJ-2011-02963

PATIENT
  Age: 75 Year
  Sex: Female

DRUGS (1)
  1. BENICAR [Suspect]
     Indication: HYPERTENSION
     Dosage: (1 IN 1 D), PER ORAL
     Route: 048
     Dates: start: 20101101, end: 20110101

REACTIONS (7)
  - MALAISE [None]
  - BRADYCARDIA [None]
  - HYPOTENSION [None]
  - VISUAL IMPAIRMENT [None]
  - HEAD DISCOMFORT [None]
  - ASTHENIA [None]
  - DRUG INEFFECTIVE [None]
